FAERS Safety Report 9560279 (Version 2)
Quarter: 2013Q4

REPORT INFORMATION
  Report Type: Spontaneous
  Country: US (occurrence: US)
  Receive Date: 20130927
  Receipt Date: 20131115
  Transmission Date: 20140711
  Serious: No
  Sender: FDA-Public Use
  Company Number: US-BIOGENIDEC-2013BI049648

PATIENT
  Age: 53 Year
  Sex: Female

DRUGS (18)
  1. TECFIDERA [Suspect]
     Indication: MULTIPLE SCLEROSIS
     Route: 048
     Dates: start: 20130517
  2. TECFIDERA [Suspect]
     Indication: MULTIPLE SCLEROSIS
     Route: 048
     Dates: start: 20130903
  3. TECFIDERA [Suspect]
     Indication: MULTIPLE SCLEROSIS
     Route: 048
  4. XANAX [Concomitant]
  5. ELAVIL [Concomitant]
     Route: 048
  6. FIORICET [Concomitant]
     Indication: HEADACHE
  7. CHOLECALCIFEROL [Concomitant]
     Route: 048
  8. CIPRO [Concomitant]
     Route: 048
  9. CELEXA [Concomitant]
     Route: 048
  10. FLEXERIL [Concomitant]
  11. CYMBALTA [Concomitant]
     Route: 048
  12. ERGOCALCIFEROL [Concomitant]
  13. OGEN [Concomitant]
     Route: 048
  14. PROVERA [Concomitant]
     Route: 048
  15. SEROQUEL [Concomitant]
     Route: 048
  16. RESTORIL [Concomitant]
     Indication: INSOMNIA
  17. TOPAMAX [Concomitant]
     Route: 048
  18. CYANOCOBALAMIN [Concomitant]
     Route: 048

REACTIONS (6)
  - Abdominal pain [Recovered/Resolved]
  - Nausea [Not Recovered/Not Resolved]
  - Hiatus hernia [Unknown]
  - Rash [Unknown]
  - Prescribed underdose [Recovered/Resolved]
  - Drug intolerance [Recovered/Resolved]
